FAERS Safety Report 8719706 (Version 2)
Quarter: 2013Q4

REPORT INFORMATION
  Report Type: Report from Study
  Country: MX (occurrence: MX)
  Receive Date: 20120813
  Receipt Date: 20131203
  Transmission Date: 20140711
  Serious: Yes (Hospitalization, Other)
  Sender: FDA-Public Use
  Company Number: PHHY2012MX069126

PATIENT
  Age: 74 Year
  Sex: Female

DRUGS (3)
  1. EXFORGE [Suspect]
     Indication: HYPERTENSION
     Dosage: 1 DF (160/5MG) DAILY
     Route: 048
     Dates: start: 200904, end: 20131116
  2. LANOXIN [Concomitant]
     Indication: CARDIAC DISORDER
     Dosage: 1 DF FROM MONDAY TO FRIDAY
     Dates: start: 199806
  3. JANUVIA [Concomitant]
     Indication: DIABETES MELLITUS
     Dosage: 0.5 DF, UNK

REACTIONS (4)
  - General physical health deterioration [Not Recovered/Not Resolved]
  - Diarrhoea [Not Recovered/Not Resolved]
  - Diabetes mellitus [Not Recovered/Not Resolved]
  - Local swelling [Recovered/Resolved]
